FAERS Safety Report 12934693 (Version 1)
Quarter: 2016Q4

REPORT INFORMATION
  Report Type: Spontaneous
  Country: US (occurrence: US)
  Receive Date: 20161111
  Receipt Date: 20161111
  Transmission Date: 20170207
  Serious: No
  Sender: FDA-Public Use
  Company Number: US-ELI_LILLY_AND_COMPANY-US201611000369

PATIENT
  Sex: Female

DRUGS (4)
  1. HUMULIN 70/30 [Suspect]
     Active Substance: INSULIN HUMAN
     Indication: TYPE 2 DIABETES MELLITUS
     Dosage: 8 U, EACH MORNING
     Route: 065
     Dates: start: 2013
  2. HUMULIN 70/30 [Suspect]
     Active Substance: INSULIN HUMAN
     Dosage: 6 U, EACH EVENING
     Route: 065
     Dates: start: 2013
  3. HUMULIN 70/30 [Suspect]
     Active Substance: INSULIN HUMAN
     Dosage: 6 U, EACH EVENING
     Route: 065
  4. HUMULIN 70/30 [Suspect]
     Active Substance: INSULIN HUMAN
     Dosage: 8 U, EACH MORNING
     Route: 065

REACTIONS (7)
  - Cataract [Recovered/Resolved]
  - Anxiety [Unknown]
  - Injection site bruising [Unknown]
  - Visual impairment [Not Recovered/Not Resolved]
  - Drug dose omission [Unknown]
  - Injection site injury [Unknown]
  - Blood glucose increased [Unknown]

NARRATIVE: CASE EVENT DATE: 2015
